FAERS Safety Report 9244717 (Version 3)
Quarter: 2013Q2

REPORT INFORMATION
  Report Type: Spontaneous
  Country: DE (occurrence: DE)
  Receive Date: 20130422
  Receipt Date: 20130531
  Transmission Date: 20140414
  Serious: Yes (Hospitalization, Other)
  Sender: FDA-Public Use
  Company Number: DE-JNJFOC-20130407741

PATIENT
  Age: 30 Year
  Sex: Female
  Weight: 64 kg

DRUGS (3)
  1. REMICADE [Suspect]
     Indication: COLITIS ULCERATIVE
     Route: 042
     Dates: start: 20121204
  2. REMICADE [Suspect]
     Indication: COLITIS ULCERATIVE
     Route: 042
     Dates: start: 20120703
  3. SALOFALK [Concomitant]
     Indication: COLITIS ULCERATIVE
     Route: 065
     Dates: start: 2006

REACTIONS (5)
  - Intervertebral discitis [Unknown]
  - Psoriasis [Unknown]
  - Eczema [Recovering/Resolving]
  - Pyoderma gangrenosum [Recovering/Resolving]
  - Alopecia areata [Recovering/Resolving]
